FAERS Safety Report 5551539-7 (Version None)
Quarter: 2007Q4

REPORT INFORMATION
  Report Type: 
  Country: None (occurrence: None)
  Receive Date: 20071212
  Receipt Date: 20071130
  Transmission Date: 20080405
  Serious: Yes (Other)
  Sender: FDA-Public Use
  Company Number: US-PFIZER INC-2007040716

PATIENT
  Sex: Male
  Weight: 95.7 kg

DRUGS (1)
  1. VIAGRA [Suspect]
     Indication: ERECTILE DYSFUNCTION
     Route: 048

REACTIONS (4)
  - ANXIETY [None]
  - CATARACT [None]
  - OPTIC ISCHAEMIC NEUROPATHY [None]
  - VISION BLURRED [None]
